FAERS Safety Report 19508038 (Version 1)
Quarter: 2021Q3

REPORT INFORMATION
  Report Type: Spontaneous
  Country: ES (occurrence: ES)
  Receive Date: 20210708
  Receipt Date: 20210708
  Transmission Date: 20211014
  Serious: Yes (Death, Hospitalization)
  Sender: FDA-Public Use
  Company Number: ES-PFIZER INC-2021795776

PATIENT
  Age: 77 Year
  Sex: Female

DRUGS (4)
  1. COMIRNATY [Suspect]
     Active Substance: TOZINAMERAN
     Indication: COVID-19 IMMUNISATION
     Dosage: DOSE 1, 0.3 ML SINGLE
     Route: 030
     Dates: start: 20210413, end: 20210413
  2. DOXYCYCLINE HYCLATE. [Suspect]
     Active Substance: DOXYCYCLINE HYCLATE
     Dosage: UNK
     Route: 048
     Dates: start: 20210301, end: 20210430
  3. EBASTINE [Concomitant]
     Active Substance: EBASTINE
  4. METRONIDAZOLE. [Concomitant]
     Active Substance: METRONIDAZOLE

REACTIONS (1)
  - Eosinophilic pneumonia acute [Fatal]

NARRATIVE: CASE EVENT DATE: 20210501
